FAERS Safety Report 8398808-3 (Version None)
Quarter: 2012Q2

REPORT INFORMATION
  Report Type: 
  Country: None (occurrence: None)
  Receive Date: 20120531
  Receipt Date: 20120523
  Transmission Date: 20120825
  Serious: Yes (Hospitalization)
  Sender: FDA-Public Use
  Company Number: FR-ASTRAZENECA-2012SE33691

PATIENT
  Age: 33 Year
  Sex: Female

DRUGS (7)
  1. QUETIAPINE FUMARATE [Suspect]
     Indication: SCHIZOPHRENIA
     Route: 048
     Dates: start: 20111101
  2. POLYETHYLENE GLYCOL [Concomitant]
     Dates: end: 20120501
  3. QUETIAPINE FUMARATE [Suspect]
     Route: 048
     Dates: end: 20120501
  4. HALDOL [Concomitant]
     Indication: SCHIZOPHRENIA
     Route: 048
  5. HALDOL [Concomitant]
     Route: 048
     Dates: end: 20120501
  6. ALPRAZOLAM [Concomitant]
     Route: 048
  7. LEPTICUR [Concomitant]
     Dates: end: 20120501

REACTIONS (3)
  - CONGESTIVE CARDIOMYOPATHY [None]
  - PULMONARY OEDEMA [None]
  - RASH PRURITIC [None]
